FAERS Safety Report 21979243 (Version 1)
Quarter: 2023Q1

REPORT INFORMATION
  Report Type: Spontaneous
  Country: US (occurrence: None)
  Receive Date: 20230209
  Receipt Date: 20230209
  Transmission Date: 20230418
  Serious: Yes (Other)
  Sender: FDA-Public Use
  Company Number: None

PATIENT
  Age: 26 Year
  Sex: Male
  Weight: 91.58 kg

DRUGS (3)
  1. RISPERDAL CONSTA [Suspect]
     Active Substance: RISPERIDONE
     Indication: Psychotic disorder
     Dosage: 50 MG Q 2 WEEKS INTRAMUSCULAR?
     Route: 030
  2. HALOPERIDOL [Concomitant]
     Active Substance: HALOPERIDOL
  3. BROMOCRIPTINE [Suspect]
     Active Substance: BROMOCRIPTINE

REACTIONS (2)
  - Blood prolactin increased [None]
  - Therapy change [None]

NARRATIVE: CASE EVENT DATE: 20221128
